FAERS Safety Report 21722611 (Version 1)
Quarter: 2022Q4

REPORT INFORMATION
  Report Type: Spontaneous
  Country: US (occurrence: US)
  Receive Date: 20221213
  Receipt Date: 20221213
  Transmission Date: 20230113
  Serious: No
  Sender: FDA-Public Use
  Company Number: US-AMGEN-USASP2022210819

PATIENT
  Sex: Male

DRUGS (2)
  1. REPATHA [Suspect]
     Active Substance: EVOLOCUMAB
     Indication: Low density lipoprotein increased
     Dosage: UNK UNK, Q2WK
     Route: 065
  2. PRALUENT [Concomitant]
     Active Substance: ALIROCUMAB
     Route: 065

REACTIONS (1)
  - Blood creatine phosphokinase increased [Unknown]
